FAERS Safety Report 7077819 (Version 3)
Quarter: 2014Q3

REPORT INFORMATION
  Report Type: Spontaneous
  Country: FI (occurrence: FI)
  Receive Date: 20090811
  Receipt Date: 20140729
  Transmission Date: 20150326
  Serious: Yes (Other)
  Sender: FDA-Public Use
  Company Number: FI-RANBAXY-2009RR-26081

PATIENT
  Age: 85 Year
  Sex: Female

DRUGS (2)
  1. SIMVASTATIN. [Suspect]
     Active Substance: SIMVASTATIN
     Indication: PRODUCT USED FOR UNKNOWN INDICATION
     Dosage: 20 MG/DAY
     Route: 065
  2. REUMACON [Suspect]
     Active Substance: PODOFILOX
     Indication: RHEUMATOID ARTHRITIS
     Route: 065

REACTIONS (2)
  - Rhabdomyolysis [Recovered/Resolved]
  - Drug interaction [Unknown]
